FAERS Safety Report 21576539 (Version 1)
Quarter: 2022Q4

REPORT INFORMATION
  Report Type: Spontaneous
  Country: CN (occurrence: CN)
  Receive Date: 20221110
  Receipt Date: 20221110
  Transmission Date: 20230113
  Serious: Yes (Hospitalization, Other)
  Sender: FDA-Public Use
  Company Number: CN-BRISTOL-MYERS SQUIBB COMPANY-2022-132097

PATIENT
  Age: 68 Year
  Sex: Male
  Weight: 60 kg

DRUGS (1)
  1. BARACLUDE [Suspect]
     Active Substance: ENTECAVIR
     Indication: Hepatitis B
     Dosage: MANUFACTURER DATE: JAN-2022
     Route: 048
     Dates: start: 201307

REACTIONS (2)
  - Pruritus [Unknown]
  - Bone cancer [Unknown]

NARRATIVE: CASE EVENT DATE: 20210601
